FAERS Safety Report 5279391-8 (Version None)
Quarter: 2007Q1

REPORT INFORMATION
  Report Type: 
  Country: None (occurrence: None)
  Receive Date: 20070328
  Receipt Date: 20070326
  Transmission Date: 20070707
  Serious: Yes (Other)
  Sender: FDA-Public Use
  Company Number: JP-BOEHRINGER INGELHEIM PHARMACEUTICALS, INC.-2007-BP-04213NB

PATIENT

DRUGS (1)
  1. PERSANTIN [Suspect]
     Route: 048

REACTIONS (1)
  - OVERDOSE [None]
